FAERS Safety Report 5231394-5 (Version None)
Quarter: 2007Q1

REPORT INFORMATION
  Report Type: 
  Country: None (occurrence: None)
  Receive Date: 20070202
  Receipt Date: 20070122
  Transmission Date: 20070707
  Serious: Yes (Death)
  Sender: FDA-Public Use
  Company Number: E3810-00592-SOL-US

PATIENT
  Age: 94 Year
  Sex: Male

DRUGS (7)
  1. ACIPHEX [Suspect]
     Indication: GASTROOESOPHAGEAL REFLUX DISEASE
     Dosage: 20 MG, UNKNOWN, ORAL
     Route: 048
  2. ATENOLOL [Concomitant]
  3. PLAVIX [Concomitant]
  4. LASIX [Concomitant]
  5. ISOSORBIDE(ISOSORBIDE) [Concomitant]
  6. LANTIS [Concomitant]
  7. HYDOCODONE [Concomitant]

REACTIONS (1)
  - MYOCARDIAL INFARCTION [None]
